FAERS Safety Report 24726641 (Version 1)
Quarter: 2024Q4

REPORT INFORMATION
  Report Type: Spontaneous
  Country: CN (occurrence: CN)
  Receive Date: 20241212
  Receipt Date: 20241212
  Transmission Date: 20250115
  Serious: Yes (Other)
  Sender: SANOFI AVENTIS
  Company Number: CN-SA-2024SA365061

PATIENT
  Age: 70 Year
  Sex: Female
  Weight: 50 kg

DRUGS (3)
  1. CLOPIDOGREL BISULFATE [Suspect]
     Active Substance: CLOPIDOGREL BISULFATE
     Indication: Antiplatelet therapy
     Dosage: 75 MG, QD
     Route: 048
     Dates: start: 20241120, end: 20241120
  2. MOSAPRIDE CITRATE [Concomitant]
     Active Substance: MOSAPRIDE CITRATE
     Dosage: 5 MG, TID
     Route: 048
     Dates: start: 20241119
  3. VONOPRAZAN [Concomitant]
     Active Substance: VONOPRAZAN
     Dosage: 20 MG, QD (20 MG IN THE MORNING UNDER FASTING STATE)
     Dates: start: 20241119

REACTIONS (4)
  - Abdominal distension [Recovering/Resolving]
  - Eructation [Recovering/Resolving]
  - Regurgitation [Recovering/Resolving]
  - Dyspepsia [Recovering/Resolving]

NARRATIVE: CASE EVENT DATE: 20241123
